FAERS Safety Report 9249959 (Version 2)
Quarter: 2013Q2

REPORT INFORMATION
  Report Type: Spontaneous
  Country: IT (occurrence: IT)
  Receive Date: 20130424
  Receipt Date: 20130611
  Transmission Date: 20140414
  Serious: Yes (Death)
  Sender: FDA-Public Use
  Company Number: IT-ROCHE-1216619

PATIENT
  Age: 79 Year
  Sex: Male

DRUGS (9)
  1. MABTHERA [Suspect]
     Indication: CHRONIC LYMPHOCYTIC LEUKAEMIA
     Route: 041
     Dates: start: 20121013, end: 20121130
  2. VINCRISTINA [Suspect]
     Indication: CHRONIC LYMPHOCYTIC LEUKAEMIA
     Route: 041
     Dates: start: 20121013, end: 20121109
  3. ENDOXAN BAXTER [Suspect]
     Indication: CHRONIC LYMPHOCYTIC LEUKAEMIA
     Route: 041
     Dates: start: 20121013, end: 20121130
  4. OMEPRAZOLE [Concomitant]
     Route: 048
  5. TRIMETON [Concomitant]
  6. NOVONORM [Concomitant]
     Indication: TYPE 2 DIABETES MELLITUS
  7. ZOFRAN [Concomitant]
  8. ENAPREN [Concomitant]
  9. DELTACORTENE [Concomitant]
     Route: 048

REACTIONS (4)
  - Acute respiratory failure [Fatal]
  - Febrile neutropenia [Fatal]
  - Pneumonia [Fatal]
  - Septic shock [Fatal]
